FAERS Safety Report 8495024-1 (Version None)
Quarter: 2012Q3

REPORT INFORMATION
  Report Type: 
  Country: None (occurrence: None)
  Receive Date: 20120709
  Receipt Date: 20120702
  Transmission Date: 20120928
  Serious: Yes (Hospitalization)
  Sender: FDA-Public Use
  Company Number: PHHY2012JP053878

PATIENT
  Age: 37 Year
  Sex: Female

DRUGS (7)
  1. NEORAL [Suspect]
     Indication: DERMATOMYOSITIS
     Dosage: 300 MG, UNK
     Route: 048
     Dates: start: 20110803, end: 20110807
  2. NEORAL [Suspect]
     Dosage: 200 MG, UNK
     Route: 048
     Dates: start: 20110808, end: 20111026
  3. NEORAL [Suspect]
     Dosage: 100 MG, UNK
     Route: 048
     Dates: start: 20111209, end: 20111214
  4. NEORAL [Suspect]
     Dosage: 50 MG, UNK
     Route: 048
     Dates: start: 20111215, end: 20120105
  5. NEORAL [Suspect]
     Dosage: 150 MG, UNK
     Route: 048
     Dates: start: 20111027, end: 20111208
  6. PREDNISOLONE [Suspect]
     Dosage: 30 MG, UNK
     Route: 048
  7. NEORAL [Suspect]
     Indication: COLLAGEN DISORDER
     Dosage: 400 MG, UNK
     Route: 048
     Dates: start: 20110731, end: 20110802

REACTIONS (2)
  - PANCREATITIS [None]
  - PANCREATIC CYST [None]
